FAERS Safety Report 15394858 (Version 2)
Quarter: 2024Q4

REPORT INFORMATION
  Report Type: Report from Study
  Country: IT (occurrence: IT)
  Receive Date: 20180918
  Receipt Date: 20241123
  Transmission Date: 20250115
  Serious: Yes (Other)
  Sender: ACCORD
  Company Number: None

PATIENT
  Age: 98 Year
  Sex: Female

DRUGS (4)
  1. RAMIPRIL [Interacting]
     Active Substance: RAMIPRIL
     Indication: Hypertension
     Route: 048
     Dates: start: 20140101, end: 20171130
  2. ACETAMINOPHEN [Interacting]
     Active Substance: ACETAMINOPHEN
     Indication: Spinal osteoarthritis
     Route: 048
     Dates: start: 20171101, end: 20171130
  3. BISOPROLOL [Interacting]
     Active Substance: BISOPROLOL
     Indication: Coronary artery disease
     Route: 048
     Dates: start: 20140101, end: 20171130
  4. LORAZEPAM [Interacting]
     Active Substance: LORAZEPAM
     Indication: Anxiety
     Dosage: AS NECESSARY
     Dates: start: 20140101, end: 20171130

REACTIONS (3)
  - Cerebrovascular accident [Recovering/Resolving]
  - Off label use [Unknown]
  - Drug interaction [Unknown]

NARRATIVE: CASE EVENT DATE: 20171130
